FAERS Safety Report 7950043-6 (Version None)
Quarter: 2011Q4

REPORT INFORMATION
  Report Type: 
  Country: None (occurrence: None)
  Receive Date: 20111130
  Receipt Date: 20111128
  Transmission Date: 20120403
  Serious: Yes (Hospitalization, Other)
  Sender: FDA-Public Use
  Company Number: US-TEVA-311031USA

PATIENT
  Age: 48 Year
  Sex: Female

DRUGS (1)
  1. LAMOTRIGINE [Suspect]

REACTIONS (4)
  - CONVULSION [None]
  - HYPOXIC-ISCHAEMIC ENCEPHALOPATHY [None]
  - CIRCULATORY COLLAPSE [None]
  - OVERDOSE [None]
